FAERS Safety Report 15639402 (Version 1)
Quarter: 2018Q4

REPORT INFORMATION
  Report Type: Spontaneous
  Country: US (occurrence: US)
  Receive Date: 20181120
  Receipt Date: 20181120
  Transmission Date: 20190205
  Serious: No
  Sender: FDA-Public Use
  Company Number: US-BAYER-2018-215005

PATIENT
  Age: 19 Year
  Sex: Female

DRUGS (1)
  1. KYLEENA [Suspect]
     Active Substance: LEVONORGESTREL
     Dosage: 17.5 MCG/24HR, CONT
     Route: 015
     Dates: start: 20180906

REACTIONS (4)
  - Procedural pain [None]
  - Hypoaesthesia [Not Recovered/Not Resolved]
  - Hypoaesthesia [None]
  - Limb discomfort [None]

NARRATIVE: CASE EVENT DATE: 20180906
